FAERS Safety Report 20960097 (Version 5)
Quarter: 2024Q4

REPORT INFORMATION
  Report Type: Report from Study
  Country: JP (occurrence: JP)
  Receive Date: 20220615
  Receipt Date: 20241209
  Transmission Date: 20250115
  Serious: Yes (Hospitalization, Other)
  Sender: TAKEDA
  Company Number: JP-TAKEDA-2022TJP056725

PATIENT
  Age: 66 Year
  Sex: Male

DRUGS (11)
  1. TEDUGLUTIDE [Suspect]
     Active Substance: TEDUGLUTIDE
     Indication: Short-bowel syndrome
     Dosage: 0.05 MILLIGRAM/KILOGRAM, QD
     Dates: start: 20220525, end: 20220607
  2. TEDUGLUTIDE [Suspect]
     Active Substance: TEDUGLUTIDE
  3. TEDUGLUTIDE [Suspect]
     Active Substance: TEDUGLUTIDE
  4. TEDUGLUTIDE [Suspect]
     Active Substance: TEDUGLUTIDE
  5. VONOPRAZAN FUMARATE [Concomitant]
     Active Substance: VONOPRAZAN FUMARATE
     Dosage: UNK
  6. POTASSIUM ASPARTATE [Concomitant]
     Active Substance: POTASSIUM ASPARTATE
     Dosage: UNK
  7. SODIUM FERROUS CITRATE [Concomitant]
     Active Substance: SODIUM FERROUS CITRATE
     Dosage: UNK
  8. MIYA-BM [Concomitant]
     Active Substance: CLOSTRIDIUM BUTYRICUM SPORES STRAIN M-55
     Dosage: UNK
  9. ACETAMINOPHEN [Concomitant]
     Active Substance: ACETAMINOPHEN
     Dosage: UNK
  10. LOPERAMIDE HYDROCHLORIDE [Concomitant]
     Active Substance: LOPERAMIDE HYDROCHLORIDE
     Dosage: UNK
  11. CYANOCOBALAMIN\PYRIDOXINE HYDROCHLORIDE\THIAMINE [Concomitant]
     Active Substance: CYANOCOBALAMIN\PYRIDOXINE HYDROCHLORIDE\THIAMINE
     Dosage: UNK

REACTIONS (2)
  - Anaemia [Recovering/Resolving]
  - Colon cancer [Recovering/Resolving]

NARRATIVE: CASE EVENT DATE: 20220608
